FAERS Safety Report 15362863 (Version 1)
Quarter: 2018Q3

REPORT INFORMATION
  Report Type: Report from Study
  Country: US (occurrence: US)
  Receive Date: 20180907
  Receipt Date: 20180907
  Transmission Date: 20181010
  Serious: Yes (Hospitalization)
  Sender: FDA-Public Use
  Company Number: US-EXELIXIS-XL18418015759

PATIENT
  Sex: Female

DRUGS (1)
  1. XL184 [Suspect]
     Active Substance: CABOZANTINIB
     Indication: ENDOMETRIAL ADENOCARCINOMA
     Dosage: 40 MG, QD
     Route: 048
     Dates: start: 20180606

REACTIONS (3)
  - Acute kidney injury [Unknown]
  - Embolism [Unknown]
  - Blood creatinine increased [Recovering/Resolving]

NARRATIVE: CASE EVENT DATE: 20180610
